FAERS Safety Report 7226402-6 (Version None)
Quarter: 2011Q1

REPORT INFORMATION
  Report Type: 
  Country: None (occurrence: None)
  Receive Date: 20110110
  Receipt Date: 20110110
  Transmission Date: 20110831
  Serious: Yes (Death)
  Sender: FDA-Public Use
  Company Number: None

PATIENT
  Age: 86 Year
  Sex: Female
  Weight: 68.0396 kg

DRUGS (1)
  1. AMIODARONE HCL [Suspect]
     Indication: ARRHYTHMIA
     Dosage: 1 TABLET  200MG TWICE A DAY PO
     Route: 048
     Dates: start: 20100820, end: 20101124

REACTIONS (6)
  - PNEUMONIA [None]
  - THYROID FUNCTION TEST ABNORMAL [None]
  - LIVER FUNCTION TEST ABNORMAL [None]
  - BLOOD POTASSIUM ABNORMAL [None]
  - TOXICITY TO VARIOUS AGENTS [None]
  - PULMONARY FIBROSIS [None]
